FAERS Safety Report 9848207 (Version 3)
Quarter: 2014Q1

REPORT INFORMATION
  Report Type: Spontaneous
  Country: US (occurrence: US)
  Receive Date: 20140128
  Receipt Date: 20140228
  Transmission Date: 20141002
  Serious: Yes (Other)
  Sender: FDA-Public Use
  Company Number: US-PFIZER INC-2014022674

PATIENT
  Age: 74 Year
  Sex: Female

DRUGS (9)
  1. LIPITOR [Suspect]
     Indication: BLOOD CHOLESTEROL INCREASED
     Dosage: 80 MG, 1X/DAY
     Route: 048
     Dates: start: 20131217, end: 20131219
  2. CORGARD [Concomitant]
     Indication: HYPERTENSION
     Dosage: 20 MG, DAILY
  3. CORGARD [Concomitant]
     Indication: CORONARY ARTERY DISEASE
  4. PLAVIX [Concomitant]
     Indication: CORONARY ARTERY DISEASE
     Dosage: 75 MG, DAILY
  5. PEPCID [Concomitant]
     Indication: GASTROOESOPHAGEAL REFLUX DISEASE
     Dosage: 40 MG, DAILY
  6. ASA [Concomitant]
     Indication: CORONARY ARTERY DISEASE
     Dosage: 81 MG, DAILY
  7. VIT D [Concomitant]
     Dosage: UNK
  8. BIOTIN [Concomitant]
     Dosage: UNK
  9. VIT B COMPLEX [Concomitant]
     Dosage: UNK

REACTIONS (1)
  - Hepatitis acute [Recovered/Resolved]
